FAERS Safety Report 24804223 (Version 1)
Quarter: 2025Q1

REPORT INFORMATION
  Report Type: Spontaneous
  Country: US (occurrence: US)
  Receive Date: 20250103
  Receipt Date: 20250103
  Transmission Date: 20250408
  Serious: No
  Sender: ITALFARMACO SPA
  Company Number: US-ITALFARMACO SPA-2168318

PATIENT

DRUGS (1)
  1. DUVYZAT [Suspect]
     Active Substance: GIVINOSTAT

REACTIONS (1)
  - Abdominal discomfort [Recovered/Resolved]
